FAERS Safety Report 5176463-3 (Version None)
Quarter: 2006Q4

REPORT INFORMATION
  Report Type: 
  Country: None (occurrence: None)
  Receive Date: 20061207
  Receipt Date: 20061128
  Transmission Date: 20070319
  Serious: Yes (Hospitalization)
  Sender: FDA-Public Use
  Company Number: 2006-05966

PATIENT
  Age: 45 Year
  Sex: Male

DRUGS (4)
  1. COLCHINE (WATSON LABORATORIES) (COLCHICINE) TABLET, 0.6MG [Suspect]
     Indication: AMYLOIDOSIS
     Dosage: 1.5 MG, DAILY X 3 YRS, ORAL
     Route: 048
     Dates: start: 20030101, end: 20060101
  2. ATORVASTATIN CALCIUM [Suspect]
     Indication: HYPERCHOLESTEROLAEMIA
     Dosage: 10 MG, DAILY X 1 MONTH, ORAL
     Route: 048
     Dates: start: 20060101, end: 20060101
  3. THEOPHYLLINE [Concomitant]
  4. ALBUTEROL [Concomitant]

REACTIONS (3)
  - DRUG INTERACTION POTENTIATION [None]
  - RENAL FAILURE ACUTE [None]
  - RHABDOMYOLYSIS [None]
